FAERS Safety Report 7621031-4 (Version None)
Quarter: 2011Q3

REPORT INFORMATION
  Report Type: 
  Country: None (occurrence: None)
  Receive Date: 20110719
  Receipt Date: 20110415
  Transmission Date: 20111222
  Serious: No
  Sender: FDA-Public Use
  Company Number: US-KINGPHARMUSA00001-K201100460

PATIENT
  Age: 67 Year
  Sex: Male
  Weight: 80.726 kg

DRUGS (9)
  1. QUINAPRIL HCL [Concomitant]
     Dosage: 40 MG, QD
  2. LEVOXYL [Suspect]
     Indication: HYPOTHYROIDISM
     Dosage: 50 MCG, QD, 6 TIMES QW
     Dates: start: 20110101
  3. LEVOXYL [Suspect]
     Dosage: 50 MCG, QD, TIW
     Dates: start: 20110201, end: 20110101
  4. ACETYLSALICYLIC ACID SRT [Concomitant]
     Dosage: 81 MG, QD
  5. ROSUVASTATIN [Concomitant]
     Dosage: 10 MG, QD
  6. LEVOXYL [Suspect]
     Dosage: 50 MCG, QD, BIW
     Dates: start: 20110101, end: 20110101
  7. METOPROLOL TARTRATE [Concomitant]
     Dosage: 50 MG, QD
  8. HYDROCHLOROTHIAZIDE [Concomitant]
     Dosage: 25 MG, QD
  9. AMLODIPINE [Concomitant]
     Dosage: 10 MG, QD

REACTIONS (1)
  - FAECAL VOLUME INCREASED [None]
